FAERS Safety Report 6968172-2 (Version None)
Quarter: 2010Q3

REPORT INFORMATION
  Report Type: 
  Country: None (occurrence: None)
  Receive Date: 20100907
  Receipt Date: 20091015
  Transmission Date: 20110219
  Serious: No
  Sender: FDA-Public Use
  Company Number: US-TYCO HEALTHCARE/MALLINCKRODT-T200901893

PATIENT
  Sex: Male
  Weight: 61.4 kg

DRUGS (2)
  1. OPTIRAY 350 [Suspect]
     Indication: COMPUTERISED TOMOGRAM
     Dosage: 100 ML, SINGLE
     Route: 042
     Dates: start: 20091008, end: 20091008
  2. MD-GASTROVIEW [Suspect]
     Dosage: 17.5 ML, UNK
     Route: 048
     Dates: start: 20091008, end: 20091008

REACTIONS (1)
  - URTICARIA [None]
